FAERS Safety Report 4534201-9 (Version None)
Quarter: 2004Q4

REPORT INFORMATION
  Report Type: 
  Country: None (occurrence: None)
  Receive Date: 20041214
  Receipt Date: 20040830
  Transmission Date: 20050328
  Serious: No
  Sender: FDA-Public Use
  Company Number: 2004232492US

PATIENT
  Age: 50 Year
  Sex: Male
  Weight: 71.2 kg

DRUGS (3)
  1. BEXTRA [Suspect]
     Indication: OSTEOARTHRITIS
     Dosage: 10 MG QD ORAL
     Route: 048
     Dates: start: 20040714
  2. INSULIN [Concomitant]
  3. ANTIHYPERTENSIVES [Concomitant]

REACTIONS (1)
  - MUSCULOSKELETAL STIFFNESS [None]
